FAERS Safety Report 6843306-9 (Version None)
Quarter: 2010Q3

REPORT INFORMATION
  Report Type: 
  Country: None (occurrence: None)
  Receive Date: 20100715
  Receipt Date: 20100708
  Transmission Date: 20110219
  Serious: No
  Sender: FDA-Public Use
  Company Number: US-BIOGENIDEC-2010BI023524

PATIENT
  Age: 40 Year
  Sex: Female

DRUGS (3)
  1. TYSABRI [Suspect]
     Indication: MULTIPLE SCLEROSIS
     Route: 042
     Dates: start: 20071125, end: 20081202
  2. TYSABRI [Suspect]
     Route: 042
     Dates: start: 20090729, end: 20091125
  3. TYSABRI [Suspect]
     Route: 042
     Dates: start: 20100609

REACTIONS (1)
  - DRUG EFFECT DECREASED [None]
